FAERS Safety Report 4457331-9 (Version None)
Quarter: 2004Q3

REPORT INFORMATION
  Report Type: 
  Country: None (occurrence: None)
  Receive Date: 20040922
  Receipt Date: 20040904
  Transmission Date: 20050211
  Serious: No
  Sender: FDA-Public Use
  Company Number: USA040977447

PATIENT
  Age: 2 Year
  Sex: Male

DRUGS (1)
  1. STRATTERA [Suspect]
     Dates: start: 20040904, end: 20040904

REACTIONS (3)
  - ACCIDENTAL EXPOSURE [None]
  - DROOLING [None]
  - SOMNOLENCE [None]
